FAERS Safety Report 12220537 (Version 1)
Quarter: 2016Q1

REPORT INFORMATION
  Report Type: Spontaneous
  Country: US (occurrence: US)
  Receive Date: 20160330
  Receipt Date: 20160330
  Transmission Date: 20160526
  Serious: No
  Sender: FDA-Public Use
  Company Number: US-MYLANLABS-2016M1002823

PATIENT
  Age: 22 Year
  Sex: Female

DRUGS (5)
  1. EMSAM [Suspect]
     Active Substance: SELEGILINE
     Indication: AFFECTIVE DISORDER
     Dosage: 9 MG, QD
     Route: 062
     Dates: start: 20151127
  2. EMSAM [Suspect]
     Active Substance: SELEGILINE
     Indication: DEPRESSION
  3. TRAZODONE MYLAN [Concomitant]
     Dosage: UNK
  4. NEURONTIN [Concomitant]
     Active Substance: GABAPENTIN
     Dosage: UNK
  5. VISTARIL [Concomitant]
     Active Substance: HYDROXYZINE PAMOATE
     Dosage: UNK

REACTIONS (1)
  - False positive investigation result [Not Recovered/Not Resolved]

NARRATIVE: CASE EVENT DATE: 20160118
